FAERS Safety Report 11127880 (Version 1)
Quarter: 2015Q2

REPORT INFORMATION
  Report Type: Spontaneous
  Country: US (occurrence: US)
  Receive Date: 20150521
  Receipt Date: 20150521
  Transmission Date: 20150821
  Serious: Yes (Hospitalization)
  Sender: FDA-Public Use
  Company Number: US-BIOGENIDEC-2015BI068454

PATIENT
  Age: 56 Year
  Sex: Male

DRUGS (2)
  1. AVONEX [Suspect]
     Active Substance: INTERFERON BETA-1A
     Indication: MULTIPLE SCLEROSIS
     Route: 030
  2. AVONEX [Suspect]
     Active Substance: INTERFERON BETA-1A
     Indication: MULTIPLE SCLEROSIS
     Route: 030
     Dates: start: 20041211

REACTIONS (3)
  - Arthralgia [Recovered/Resolved]
  - Pyrexia [Recovered/Resolved]
  - Shoulder arthroplasty [Recovered/Resolved]

NARRATIVE: CASE EVENT DATE: 20150317
